FAERS Safety Report 16770812 (Version 2)
Quarter: 2019Q3

REPORT INFORMATION
  Report Type: Report from Study
  Country: IT (occurrence: IT)
  Receive Date: 20190904
  Receipt Date: 20190926
  Transmission Date: 20191005
  Serious: Yes (Other)
  Sender: FDA-Public Use
  Company Number: IT-ACCORD-153643

PATIENT
  Age: 65 Year
  Sex: Female

DRUGS (7)
  1. CHLORPHENAMINE [Concomitant]
     Active Substance: CHLORPHENIRAMINE MALEATE
  2. SODIUM CHLORIDE. [Concomitant]
     Active Substance: SODIUM CHLORIDE
  3. DEXAMETHASONE. [Concomitant]
     Active Substance: DEXAMETHASONE
  4. CARBOPLATIN. [Suspect]
     Active Substance: CARBOPLATIN
     Indication: OVARIAN CANCER
     Dosage: ALSO RECEIVED 450 MG  FROM 29-FEB-2016 TO 12-APR-2017
     Route: 042
     Dates: start: 20160229, end: 20170412
  5. RANITIDINE. [Concomitant]
     Active Substance: RANITIDINE
  6. ONDANSETRON [Concomitant]
     Active Substance: ONDANSETRON
  7. CARBOPLATIN. [Suspect]
     Active Substance: CARBOPLATIN
     Indication: OVARIAN CANCER
     Dosage: ALSO RECEIVED 450 MG  FROM 29-FEB-2016 TO 12-APR-2017
     Route: 042
     Dates: start: 20190723, end: 20190821

REACTIONS (2)
  - Erythema [Recovered/Resolved]
  - Infusion related reaction [Recovered/Resolved]

NARRATIVE: CASE EVENT DATE: 20190821
